FAERS Safety Report 8913330 (Version 1)
Quarter: 2012Q4

REPORT INFORMATION
  Report Type: Spontaneous
  Country: TH (occurrence: None)
  Receive Date: 20121113
  Receipt Date: 20121113
  Transmission Date: 20130627
  Serious: Yes (Hospitalization)
  Sender: FDA-Public Use
  Company Number: VAL_00972_2012

PATIENT
  Sex: Male
  Weight: 51 kg

DRUGS (5)
  1. METOPROLOL TARTRATE [Suspect]
     Indication: CARDIAC FAILURE
     Route: 048
     Dates: start: 20111202, end: 20121024
  2. LCZ696 [Suspect]
     Dosage: (DF [code not broken] oral)
     Dates: start: 20120531, end: 20121024
  3. FUROSEMIDE [Concomitant]
  4. SIMVASTATIN [Concomitant]
  5. ASPIRIN [Concomitant]

REACTIONS (5)
  - Vertigo [None]
  - Presyncope [None]
  - Hypotension [None]
  - Blood creatinine increased [None]
  - Blood glucose increased [None]
